FAERS Safety Report 21057487 (Version 1)
Quarter: 2022Q3

REPORT INFORMATION
  Report Type: Spontaneous
  Country: US (occurrence: US)
  Receive Date: 20220708
  Receipt Date: 20220708
  Transmission Date: 20221027
  Serious: Yes (Hospitalization)
  Sender: FDA-Public Use
  Company Number: US-009507513-2207USA001294

PATIENT
  Sex: Female

DRUGS (1)
  1. BELSOMRA [Suspect]
     Active Substance: SUVOREXANT
     Dosage: 10 MG
     Route: 048

REACTIONS (4)
  - Adverse event [Unknown]
  - Adverse event [Unknown]
  - Product availability issue [Unknown]
  - Product dose omission issue [Unknown]
